FAERS Safety Report 12854806 (Version 1)
Quarter: 2016Q4

REPORT INFORMATION
  Report Type: Spontaneous
  Country: FR (occurrence: FR)
  Receive Date: 20161017
  Receipt Date: 20161017
  Transmission Date: 20170207
  Serious: Yes (Other)
  Sender: FDA-Public Use
  Company Number: FR-SHIRE-FR201614220

PATIENT
  Sex: Male

DRUGS (2)
  1. XAGRID [Suspect]
     Active Substance: ANAGRELIDE HYDROCHLORIDE
     Dosage: 2 DF, UNKNOWN (PER DAY)
     Route: 048
     Dates: start: 20160905
  2. XAGRID [Suspect]
     Active Substance: ANAGRELIDE HYDROCHLORIDE
     Indication: ESSENTIAL THROMBOCYTHAEMIA
     Dosage: 1 DF, 1X/DAY:QD
     Route: 048
     Dates: start: 20160828, end: 20160904

REACTIONS (4)
  - Pneumonitis [Unknown]
  - C-reactive protein increased [Unknown]
  - Fatigue [Unknown]
  - Platelet count increased [Unknown]

NARRATIVE: CASE EVENT DATE: 2016
